FAERS Safety Report 8728571 (Version 3)
Quarter: 2012Q4

REPORT INFORMATION
  Report Type: 
  Country: JP (occurrence: JP)
  Receive Date: 20120817
  Receipt Date: 20121207
  Transmission Date: 20130627
  Serious: Yes (Hospitalization, Disabling, Other)
  Sender: FDA-Public Use
  Company Number: JP-ASTELLAS-2012JP007565

PATIENT
  Age: 68 Year
  Sex: Female

DRUGS (9)
  1. PROGRAF [Suspect]
     Indication: SCLEREMA
     Dosage: 3 mg, Unknown/D
     Route: 048
     Dates: start: 20101015, end: 20101101
  2. PROGRAF [Suspect]
     Indication: SCLERODERMA
     Dosage: 1 mg, Unknown/D
     Route: 048
     Dates: start: 20100903, end: 20100914
  3. PROGRAF [Suspect]
     Dosage: 2 mg, Unknown/D
     Route: 048
     Dates: start: 20100915, end: 20101014
  4. PREDNISOLONE [Suspect]
     Indication: SCLEREMA
     Dosage: 30 mg, Unknown/D
     Route: 048
     Dates: start: 20060405, end: 20110118
  5. PREDNISOLONE [Suspect]
     Indication: SCLERODERMA
  6. PROCYLIN [Concomitant]
     Indication: SCLERODERMA
     Dosage: 120 ug, Unknown/D
     Route: 048
     Dates: end: 20101101
  7. TAKEPRON [Concomitant]
     Dosage: 15 mg, UID/QD
     Route: 048
  8. KLARICID                           /00984601/ [Concomitant]
     Dosage: 200 mg, bid
     Route: 048
     Dates: end: 20101101
  9. MUCOSOLVAN [Concomitant]
     Dosage: 15 mg, tid
     Route: 048
     Dates: end: 20101101

REACTIONS (4)
  - Drug ineffective for unapproved indication [Recovering/Resolving]
  - Sclerema [Recovering/Resolving]
  - Scleroderma renal crisis [Not Recovered/Not Resolved]
  - Thrombotic microangiopathy [Unknown]
